FAERS Safety Report 9367082 (Version 1)
Quarter: 2013Q2

REPORT INFORMATION
  Report Type: Report from Study
  Country: US (occurrence: MY)
  Receive Date: 20130625
  Receipt Date: 20130625
  Transmission Date: 20140414
  Serious: Yes (Hospitalization, Other)
  Sender: FDA-Public Use
  Company Number: MY-BRISTOL-MYERS SQUIBB COMPANY-19017631

PATIENT
  Age: 56 Year
  Sex: Male
  Weight: 53 kg

DRUGS (2)
  1. CARBOPLATIN [Suspect]
     Indication: NON-SMALL CELL LUNG CANCER
     Dosage: 610MG ?568.5MG,21NOV12
     Route: 042
     Dates: start: 20121005
  2. PEMETREXED DISODIUM [Suspect]
     Indication: NON-SMALL CELL LUNG CANCER
     Dosage: LAST DOSE ON:21NOV12
     Route: 042
     Dates: start: 20121005

REACTIONS (7)
  - Abdominal pain [Recovering/Resolving]
  - Dyspnoea [Recovered/Resolved]
  - Constipation [Recovered/Resolved with Sequelae]
  - Dizziness [Recovered/Resolved]
  - Gastritis [Recovered/Resolved]
  - Lower respiratory tract infection [Recovered/Resolved]
  - Nausea [Recovered/Resolved]
